FAERS Safety Report 8554294-1 (Version None)
Quarter: 2012Q3

REPORT INFORMATION
  Report Type: 
  Country: None (occurrence: None)
  Receive Date: 20120731
  Receipt Date: 20120725
  Transmission Date: 20120928
  Serious: Yes (Other)
  Sender: FDA-Public Use
  Company Number: GB-009507513-1207GBR011184

PATIENT

DRUGS (3)
  1. SIMVASTATIN [Concomitant]
  2. LOSARTAN POTASSIUM [Suspect]
     Indication: DIASTOLIC HYPERTENSION
     Dosage: 50 MG, UNK
     Route: 048
     Dates: start: 20120601
  3. LEVOTHYROXINE SODIUM [Concomitant]

REACTIONS (1)
  - CONSTIPATION [None]
